FAERS Safety Report 5210367-2 (Version None)
Quarter: 2007Q1

REPORT INFORMATION
  Report Type: 
  Country: None (occurrence: None)
  Receive Date: 20070117
  Receipt Date: 20070110
  Transmission Date: 20070707
  Serious: Yes (Hospitalization)
  Sender: FDA-Public Use
  Company Number: FR-BRISTOL-MYERS SQUIBB COMPANY-13642335

PATIENT
  Age: 46 Year
  Sex: Male

DRUGS (5)
  1. BCNU PWDR FOR INJ 100 MG [Suspect]
     Indication: LYMPHOMA
     Route: 042
     Dates: start: 20060426, end: 20060426
  2. ALKERAN [Suspect]
     Indication: LYMPHOMA
     Route: 042
     Dates: start: 20060426, end: 20060426
  3. ARACYTINE [Suspect]
     Indication: LYMPHOMA
     Route: 042
     Dates: start: 20040430, end: 20040430
  4. VEPESIDE-SANDOZ [Suspect]
     Indication: LYMPHOMA
     Route: 042
     Dates: start: 20060427, end: 20060430
  5. HEMATOPOETIC PROGENITOR CELLS HUMAN [Concomitant]
     Dates: start: 20060503, end: 20060503

REACTIONS (3)
  - DIARRHOEA [None]
  - PANCYTOPENIA [None]
  - RASH PUSTULAR [None]
